FAERS Safety Report 24957364 (Version 1)
Quarter: 2025Q1

REPORT INFORMATION
  Report Type: Spontaneous
  Country: JP (occurrence: JP)
  Receive Date: 20250211
  Receipt Date: 20250211
  Transmission Date: 20250408
  Serious: Yes (Other)
  Sender: ASTELLAS
  Company Number: JP-ASTELLAS-2024-AER-001245

PATIENT
  Age: 4 Decade
  Sex: Female

DRUGS (3)
  1. VYLOY [Suspect]
     Active Substance: ZOLBETUXIMAB-CLZB
     Indication: Gastric cancer
     Route: 065
     Dates: start: 20240821, end: 20240821
  2. VYLOY [Suspect]
     Active Substance: ZOLBETUXIMAB-CLZB
     Route: 065
     Dates: start: 20240918, end: 20240918
  3. OXALIPLATIN [Concomitant]
     Active Substance: OXALIPLATIN
     Indication: Product used for unknown indication
     Route: 065

REACTIONS (7)
  - Gastric cancer [Unknown]
  - Abdominal pain [Recovered/Resolved]
  - Back pain [Recovered/Resolved]
  - Abdominal pain lower [Recovered/Resolved]
  - Back pain [Recovered/Resolved]
  - Nausea [Recovered/Resolved]
  - Off label use [Unknown]

NARRATIVE: CASE EVENT DATE: 20240821
